FAERS Safety Report 22105172 (Version 2)
Quarter: 2023Q1

REPORT INFORMATION
  Report Type: Spontaneous
  Country: US (occurrence: US)
  Receive Date: 20230316
  Receipt Date: 20230328
  Transmission Date: 20230418
  Serious: Yes (Hospitalization, Other)
  Sender: FDA-Public Use
  Company Number: US-ELI_LILLY_AND_COMPANY-US202303005306

PATIENT
  Sex: Male

DRUGS (1)
  1. INSULIN LISPRO [Suspect]
     Active Substance: INSULIN LISPRO
     Indication: Type 2 diabetes mellitus
     Dosage: UNK UNK, QID
     Route: 065
     Dates: start: 20230214

REACTIONS (6)
  - Blood glucose increased [Not Recovered/Not Resolved]
  - Wound infection [Unknown]
  - Osteomyelitis [Unknown]
  - Incorrect dose administered [Unknown]
  - Visual impairment [Unknown]
  - Injection site pain [Unknown]
